FAERS Safety Report 9870469 (Version 1)
Quarter: 2014Q1

REPORT INFORMATION
  Report Type: Spontaneous
  Country: US (occurrence: US)
  Receive Date: 20140205
  Receipt Date: 20140205
  Transmission Date: 20141002
  Serious: Yes (Hospitalization, Other)
  Sender: FDA-Public Use
  Company Number: US-BAXTER-2014BAX004591

PATIENT
  Sex: Male

DRUGS (1)
  1. GAMMAGARD S/D [Suspect]
     Indication: MULTIFOCAL MOTOR NEUROPATHY
     Dosage: FOR 5 CONSECUTIVE DAYS
     Route: 042

REACTIONS (1)
  - Pulmonary embolism [Recovered/Resolved]
